FAERS Safety Report 19653587 (Version 1)
Quarter: 2021Q3

REPORT INFORMATION
  Report Type: Spontaneous
  Country: US (occurrence: US)
  Receive Date: 20210803
  Receipt Date: 20210803
  Transmission Date: 20211014
  Serious: Yes (Death, Other)
  Sender: FDA-Public Use
  Company Number: US-SA-2020SA221490

PATIENT
  Age: 77 Year
  Sex: Male

DRUGS (1)
  1. JEVTANA [Suspect]
     Active Substance: CABAZITAXEL
     Indication: NEOPLASM PROSTATE
     Dosage: EVERY 3 OR 4 WEEKS
     Route: 065
     Dates: start: 20200616

REACTIONS (2)
  - Product storage error [Unknown]
  - Death [Fatal]

NARRATIVE: CASE EVENT DATE: 20200814
